FAERS Safety Report 11667723 (Version 2)
Quarter: 2015Q4

REPORT INFORMATION
  Report Type: Spontaneous
  Country: US (occurrence: US)
  Receive Date: 20151027
  Receipt Date: 20151027
  Transmission Date: 20160304
  Serious: Yes (Other)
  Sender: FDA-Public Use
  Company Number: US-SHIRE-US201513111

PATIENT
  Age: 72 Year
  Sex: Female

DRUGS (1)
  1. AGRYLIN [Suspect]
     Active Substance: ANAGRELIDE HYDROCHLORIDE
     Indication: POLYCYTHAEMIA
     Dosage: 0.5 MG, 2X/DAY:BID
     Route: 048

REACTIONS (2)
  - Renal failure [Not Recovered/Not Resolved]
  - Product use issue [Unknown]
